FAERS Safety Report 4578792-0 (Version None)
Quarter: 2005Q1

REPORT INFORMATION
  Report Type: 
  Country: None (occurrence: None)
  Receive Date: 20050207
  Receipt Date: 20050207
  Transmission Date: 20050727
  Serious: Yes (Other)
  Sender: FDA-Public Use
  Company Number: None

PATIENT
  Age: 61 Year
  Sex: Male
  Weight: 96.6162 kg

DRUGS (1)
  1. VIOXX [Suspect]
     Indication: OSTEOARTHRITIS
     Dosage: 25 MG DAILY

REACTIONS (4)
  - CHEST DISCOMFORT [None]
  - CHEST PAIN [None]
  - DYSPNOEA [None]
  - PAIN IN EXTREMITY [None]
